FAERS Safety Report 23655121 (Version 1)
Quarter: 2024Q1

REPORT INFORMATION
  Report Type: Spontaneous
  Country: CA (occurrence: CA)
  Receive Date: 20240320
  Receipt Date: 20240320
  Transmission Date: 20240410
  Serious: Yes (Life-Threatening, Other)
  Sender: FDA-Public Use
  Company Number: None

PATIENT
  Age: 45 Year
  Sex: Female

DRUGS (1)
  1. MONOFERRIC [Suspect]
     Active Substance: FERRIC DERISOMALTOSE
     Indication: Iron deficiency anaemia
     Route: 050

REACTIONS (7)
  - Blindness [Unknown]
  - Bradycardia [Unknown]
  - Dyspnoea [Unknown]
  - Loss of consciousness [Unknown]
  - Nausea [Unknown]
  - Pulse abnormal [Unknown]
  - Unresponsive to stimuli [Unknown]
